FAERS Safety Report 15853291 (Version 1)
Quarter: 2019Q1

REPORT INFORMATION
  Report Type: Spontaneous
  Country: US (occurrence: US)
  Receive Date: 20190120
  Receipt Date: 20190120
  Transmission Date: 20190417
  Serious: No
  Sender: FDA-Public Use
  Company Number: None

PATIENT
  Age: 35 Year
  Sex: Female
  Weight: 61.65 kg

DRUGS (2)
  1. RHOFADE [Suspect]
     Active Substance: OXYMETAZOLINE HYDROCHLORIDE
     Indication: ROSACEA
     Dosage: ?          QUANTITY:1 MINIMAL AMOUNT;?
     Route: 061
     Dates: start: 20190119, end: 20190120
  2. VITAMIN [Concomitant]
     Active Substance: VITAMINS

REACTIONS (2)
  - Hot flush [None]
  - Rosacea [None]

NARRATIVE: CASE EVENT DATE: 20190119
